FAERS Safety Report 16937089 (Version 2)
Quarter: 2019Q4

REPORT INFORMATION
  Report Type: Spontaneous
  Country: US (occurrence: US)
  Receive Date: 20191018
  Receipt Date: 20191019
  Transmission Date: 20200122
  Serious: No
  Sender: FDA-Public Use
  Company Number: NVSC2019US008734

PATIENT
  Age: 44 Year
  Sex: Female

DRUGS (3)
  1. AIMOVIG [Suspect]
     Active Substance: ERENUMAB-AOOE
     Indication: MIGRAINE
     Dosage: 140 MG (UNSUCCESSFUL ATTEMPT)
     Route: 065
     Dates: start: 20190924
  2. ENBREL [Suspect]
     Active Substance: ETANERCEPT
     Dosage: MULTIPLE-USE VIAL
     Route: 065
     Dates: start: 2019
  3. ENBREL [Suspect]
     Active Substance: ETANERCEPT
     Indication: PRODUCT USED FOR UNKNOWN INDICATION
     Dosage: UNK
     Route: 065
     Dates: start: 2019, end: 2019

REACTIONS (3)
  - Contusion [Unknown]
  - Product storage error [Unknown]
  - Device issue [Unknown]

NARRATIVE: CASE EVENT DATE: 2019
